FAERS Safety Report 13115131 (Version 2)
Quarter: 2017Q1

REPORT INFORMATION
  Report Type: Spontaneous
  Country: RU (occurrence: RU)
  Receive Date: 20170113
  Receipt Date: 20170210
  Transmission Date: 20170428
  Serious: Yes (Other)
  Sender: FDA-Public Use
  Company Number: RU-PFIZER INC-2017016486

PATIENT
  Age: 31 Year
  Sex: Male

DRUGS (3)
  1. PANITUMUMAB [Suspect]
     Active Substance: PANITUMUMAB
     Indication: METASTASES TO LUNG
     Dosage: 200 MG/M2, BIWEEKLY
  2. IRINOTECAN HCL [Suspect]
     Active Substance: IRINOTECAN HYDROCHLORIDE
     Indication: METASTASES TO LUNG
     Dosage: 180 MG/M2, UNK
  3. VEMURAFENIB [Suspect]
     Active Substance: VEMURAFENIB
     Indication: METASTASES TO LUNG
     Dosage: 960 MG, TWICE A DAY

REACTIONS (7)
  - Skin toxicity [Recovering/Resolving]
  - Alopecia [Unknown]
  - Paronychia [Recovered/Resolved]
  - Nausea [Unknown]
  - Diarrhoea [Unknown]
  - Hypertrichosis [Unknown]
  - Epidermal naevus syndrome [Recovered/Resolved]
